FAERS Safety Report 4875648-0 (Version None)
Quarter: 2005Q4

REPORT INFORMATION
  Report Type: 
  Country: None (occurrence: None)
  Receive Date: 20051223
  Receipt Date: 20050920
  Transmission Date: 20060501
  Serious: Yes (Death)
  Sender: FDA-Public Use
  Company Number: 05P-163-0308990-00

PATIENT
  Age: 83 Year
  Sex: Female

DRUGS (3)
  1. HUMIRA [Suspect]
     Indication: RHEUMATOID ARTHRITIS
     Dosage: 40 MG , 1 IN 2 WK, SUBCUTANEOUS
     Route: 058
     Dates: start: 20041214, end: 20050801
  2. METHOTREXATE [Concomitant]
  3. FOLIC ACID [Concomitant]

REACTIONS (1)
  - MYOCARDIAL INFARCTION [None]
